FAERS Safety Report 19487383 (Version 3)
Quarter: 2022Q1

REPORT INFORMATION
  Report Type: Spontaneous
  Country: US (occurrence: US)
  Receive Date: 20210702
  Receipt Date: 20220310
  Transmission Date: 20220423
  Serious: Yes (Life-Threatening, Other)
  Sender: FDA-Public Use
  Company Number: US-009507513-2107USA000260

PATIENT
  Sex: Male
  Weight: 92.1 kg

DRUGS (5)
  1. KEYTRUDA [Suspect]
     Active Substance: PEMBROLIZUMAB
     Indication: Neuroendocrine carcinoma
     Dosage: 100 MILLIGRAM, Q3W, CYCLE 1
     Route: 042
     Dates: start: 20210409
  2. KEYTRUDA [Suspect]
     Active Substance: PEMBROLIZUMAB
     Dosage: 200 MG
     Route: 042
     Dates: start: 20220201
  3. LENVATINIB MESYLATE [Suspect]
     Active Substance: LENVATINIB MESYLATE
     Indication: Neuroendocrine carcinoma
     Dosage: 20 MILLIGRAM, DAILY, CYCLE 1 (ALSO REPORTED 8MG)
     Route: 048
     Dates: start: 20210409
  4. TESTOSTERONE [Concomitant]
     Active Substance: TESTOSTERONE
     Indication: Embolism venous
     Dosage: HIGH DOSE
     Dates: start: 202002
  5. TESTOSTERONE [Concomitant]
     Active Substance: TESTOSTERONE
     Dosage: NOW ON MINIMAL DOSING

REACTIONS (24)
  - Malignant neoplasm progression [Unknown]
  - Hypothyroidism [Unknown]
  - Scab [Unknown]
  - Increased tendency to bruise [Unknown]
  - Benign prostatic hyperplasia [Unknown]
  - Mitral valve prolapse [Unknown]
  - Body mass index increased [Unknown]
  - Cardiac murmur [Unknown]
  - Lymphocyte percentage abnormal [Unknown]
  - Protein urine present [Recovered/Resolved]
  - Chest pain [Recovered/Resolved]
  - Glomerular filtration rate decreased [Unknown]
  - Blood glucose increased [Unknown]
  - Dyspepsia [Not Recovered/Not Resolved]
  - Blood creatinine increased [Unknown]
  - Pain [Unknown]
  - Vomiting [Unknown]
  - Nausea [Unknown]
  - Rash [Recovered/Resolved]
  - Diarrhoea [Recovered/Resolved]
  - Back pain [Recovered/Resolved]
  - Abdominal pain [Recovered/Resolved]
  - Product use in unapproved indication [Unknown]
  - Incorrect dose administered [Unknown]

NARRATIVE: CASE EVENT DATE: 20210101
